FAERS Safety Report 5163127-5 (Version None)
Quarter: 2007Q1

REPORT INFORMATION
  Report Type: 
  Country: None (occurrence: None)
  Receive Date: 20061204
  Receipt Date: 20061122
  Transmission Date: 20070707
  Serious: Yes (Hospitalization)
  Sender: FDA-Public Use
  Company Number: US-JNJFOC-20061106436

PATIENT
  Sex: Female

DRUGS (17)
  1. TYLENOL [Suspect]
  2. TYLENOL [Suspect]
     Indication: PAIN
  3. FLEXERIL [Suspect]
     Indication: PAIN
  4. OXYCONTIN [Suspect]
     Indication: PAIN
     Route: 048
  5. LORTAB [Suspect]
     Indication: PAIN
     Dosage: 5/5000 MG
  6. LEXAPRO [Suspect]
     Indication: DEPRESSION
     Route: 048
  7. ANTI-ANXIETY MEDICATIONS [Concomitant]
     Indication: PAIN
  8. FENTANYL CITRATE [Suspect]
     Route: 002
  9. FENTANYL CITRATE [Suspect]
     Indication: BREAKTHROUGH PAIN
     Route: 002
  10. ZITHROMAX [Concomitant]
     Indication: PNEUMONIA
  11. SEROQUEL [Concomitant]
     Indication: DRUG USE FOR UNKNOWN INDICATION
  12. ALBUTEROL [Concomitant]
     Indication: DRUG USE FOR UNKNOWN INDICATION
  13. ASPIRIN [Concomitant]
     Indication: DRUG USE FOR UNKNOWN INDICATION
  14. SYNTHROID [Concomitant]
     Indication: DRUG USE FOR UNKNOWN INDICATION
  15. LYRICA [Concomitant]
     Indication: DRUG USE FOR UNKNOWN INDICATION
  16. COMBIVENT [Concomitant]
     Indication: DRUG USE FOR UNKNOWN INDICATION
  17. NEXIUM [Concomitant]
     Indication: DRUG USE FOR UNKNOWN INDICATION

REACTIONS (3)
  - MULTIPLE DRUG OVERDOSE [None]
  - PERICARDIAL EFFUSION [None]
  - PLEURAL EFFUSION [None]
